FAERS Safety Report 6402521-9 (Version None)
Quarter: 2009Q4

REPORT INFORMATION
  Report Type: 
  Country: None (occurrence: None)
  Receive Date: 20091009
  Receipt Date: 20090930
  Transmission Date: 20100525
  Serious: Yes (Hospitalization)
  Sender: FDA-Public Use
  Company Number: ADR34452009

PATIENT
  Age: 54 Year
  Sex: Male

DRUGS (5)
  1. CIPROFLOXACIN [Suspect]
     Indication: PROPHYLAXIS
     Dosage: 1 G ORAL
     Route: 048
     Dates: start: 20080701
  2. AZITHROMYCIN [Concomitant]
  3. SERETIDE (FLUTICASONE, SALMETEROL) [Concomitant]
  4. FLUOXETINE [Concomitant]
  5. THEOPHYLLINE [Concomitant]

REACTIONS (3)
  - CHROMATURIA [None]
  - FAECES PALE [None]
  - JAUNDICE [None]
